FAERS Safety Report 8742260 (Version 2)
Quarter: 2013Q4

REPORT INFORMATION
  Report Type: Report from Study
  Country: JP (occurrence: JP)
  Receive Date: 20120824
  Receipt Date: 20131108
  Transmission Date: 20140711
  Serious: Yes (Other)
  Sender: FDA-Public Use
  Company Number: JP-009507513-2012SP025012

PATIENT
  Age: 70 Year
  Sex: Female
  Weight: 56 kg

DRUGS (27)
  1. NEXIUM [Concomitant]
     Route: 048
  2. CEREKINON [Concomitant]
     Indication: IRRITABLE BOWEL SYNDROME
     Dosage: 300 MG, QD
     Route: 048
  3. CEREKINON [Concomitant]
     Route: 048
  4. CELECOXIB [Concomitant]
     Indication: ARTHRALGIA
     Dosage: FORMULATION : POR-DETAILS UNKNOWN
     Route: 048
  5. HEPARINOID [Concomitant]
     Indication: PROPHYLAXIS
     Dosage: FORMULATION :OIT-DETAILS UNKNOWN
     Route: 061
     Dates: start: 20120120
  6. HEPARINOID [Concomitant]
     Indication: PROPHYLAXIS
     Dosage: FORMULATION : LOT-DETAILS UNKNOWN
     Route: 061
  7. ALOSITOL [Concomitant]
     Indication: HYPERURICAEMIA
     Dosage: 200 MG, QD
     Route: 048
     Dates: start: 20120224
  8. CALCIUM CHLORIDE (+) POTASSIUM CHLORIDE (+) SODIUM CHLORIDE (+) SODIUM [Concomitant]
     Indication: PRODUCT USED FOR UNKNOWN INDICATION
     Dosage: 500 ML, QD
     Route: 042
     Dates: start: 20120309, end: 20120316
  9. TELAVIC [Suspect]
     Indication: HEPATITIS C
     Route: 048
     Dates: start: 20120120, end: 20120308
  10. TELAVIC [Suspect]
     Route: 048
     Dates: start: 20120309
  11. [THERAPY UNSPECIFIED] [Concomitant]
     Indication: IRRITABLE BOWEL SYNDROME
     Route: 048
  12. [THERAPY UNSPECIFIED] [Concomitant]
     Indication: PROPHYLAXIS
     Dosage: AS NEEDED
     Route: 051
     Dates: end: 20120706
  13. CELECOX [Concomitant]
     Indication: ARTHRALGIA
     Route: 048
  14. HIRUDOID [Concomitant]
     Indication: PROPHYLAXIS
     Dosage: Q.S./DAY, AS NEEDED
     Route: 061
     Dates: start: 20120120
  15. VOLTAREN [Concomitant]
     Indication: PROPHYLAXIS
     Dosage: AS NEEDED
     Route: 048
     Dates: start: 20120120, end: 20120401
  16. PEGINTRON [Suspect]
     Indication: HEPATITIS C
     Dosage: 1.5 ?G/KG, QW
     Route: 058
     Dates: start: 20120120
  17. PEGINTRON [Suspect]
     Dosage: 1.5MCG/KG/WEEK
     Route: 058
     Dates: start: 20120120, end: 20120706
  18. REBETOL [Suspect]
     Indication: HEPATITIS C
     Dosage: 600 MG, QD
     Route: 048
     Dates: start: 20120120, end: 20120209
  19. REBETOL [Suspect]
     Dosage: 400 MG, QD
     Route: 048
     Dates: start: 20120210, end: 20120308
  20. REBETOL [Suspect]
     Dosage: 200 MG, QD
     Route: 048
     Dates: start: 20120309, end: 20120315
  21. REBETOL [Suspect]
     Dosage: 200 MG, UNKNOWN
     Route: 048
     Dates: start: 20120330
  22. REBETOL [Suspect]
     Dosage: 200MG/EVERY OTHER DAY
     Route: 048
     Dates: start: 20120330, end: 20120524
  23. REBETOL [Suspect]
     Route: 048
     Dates: start: 20120629, end: 20120706
  24. ANTIVIRAL (UNSPECIFIED) [Suspect]
     Indication: HEPATITIS C
     Dosage: 1500 MG, QD
     Route: 048
     Dates: start: 20120120, end: 20120308
  25. ANTIVIRAL (UNSPECIFIED) [Suspect]
     Dosage: 1000 MG, QD
     Route: 048
     Dates: start: 20120309
  26. URSO [Concomitant]
     Indication: HEPATITIS C
     Dosage: FORMULATION: POR-DETAILS UNKNOWN
     Route: 048
     Dates: end: 20120216
  27. NEXIUM [Concomitant]
     Indication: GASTROOESOPHAGEAL REFLUX DISEASE
     Dosage: FORMULATION : POR-DETAILS UNKNOWN
     Route: 048

REACTIONS (3)
  - Renal impairment [Recovering/Resolving]
  - Haemoglobin decreased [Not Recovered/Not Resolved]
  - Pericardial effusion [Recovering/Resolving]
